FAERS Safety Report 21496899 (Version 2)
Quarter: 2022Q4

REPORT INFORMATION
  Report Type: Spontaneous
  Country: NO (occurrence: NO)
  Receive Date: 20221022
  Receipt Date: 20221101
  Transmission Date: 20230113
  Serious: Yes (Other)
  Sender: FDA-Public Use
  Company Number: NO-TEVA-2022-NO-2819040

PATIENT
  Age: 55 Year
  Sex: Female

DRUGS (4)
  1. AJOVY [Suspect]
     Active Substance: FREMANEZUMAB-VFRM
     Indication: Migraine
     Route: 058
     Dates: start: 20220725
  2. ZOMIG [Concomitant]
     Active Substance: ZOLMITRIPTAN
     Indication: Product used for unknown indication
     Route: 065
  3. ZOLMITRIPTAN [Concomitant]
     Active Substance: ZOLMITRIPTAN
     Indication: Product used for unknown indication
     Route: 065
  4. ANTIPYRINE [Concomitant]
     Active Substance: ANTIPYRINE
     Indication: Product used for unknown indication
     Route: 065

REACTIONS (16)
  - Herpes ophthalmic [Unknown]
  - Eyelid injury [Unknown]
  - Injection site swelling [Not Recovered/Not Resolved]
  - Oedema peripheral [Unknown]
  - Drug hypersensitivity [Not Recovered/Not Resolved]
  - Ocular hyperaemia [Recovered/Resolved]
  - Pruritus [Recovered/Resolved]
  - Erythema [Recovered/Resolved]
  - Injection site urticaria [Not Recovered/Not Resolved]
  - Lymphatic disorder [Unknown]
  - Fatigue [Unknown]
  - Abdominal pain upper [Unknown]
  - Back pain [Unknown]
  - Renal pain [Unknown]
  - Injection site mass [Unknown]
  - Piloerection [Unknown]

NARRATIVE: CASE EVENT DATE: 20220725
